FAERS Safety Report 8378314-2 (Version None)
Quarter: 2012Q2

REPORT INFORMATION
  Report Type: 
  Country: None (occurrence: None)
  Receive Date: 20120522
  Receipt Date: 20120515
  Transmission Date: 20120825
  Serious: Yes (Hospitalization, Other)
  Sender: FDA-Public Use
  Company Number: DE-PFIZER INC-2012118031

PATIENT
  Age: 60 Year
  Sex: Male

DRUGS (3)
  1. DOCETAXEL [Suspect]
     Indication: GASTRIC CANCER
     Dosage: UNK
  2. CISPLATIN [Suspect]
     Indication: GASTRIC CANCER
     Dosage: UNK
  3. FLUOROURACIL [Suspect]
     Indication: GASTRIC CANCER
     Dosage: UNK

REACTIONS (2)
  - AORTIC ANEURYSM [None]
  - NAUSEA [None]
